FAERS Safety Report 5254593-5 (Version None)
Quarter: 2007Q1

REPORT INFORMATION
  Report Type: 
  Country: None (occurrence: None)
  Receive Date: 20070302
  Receipt Date: 20070221
  Transmission Date: 20070707
  Serious: Yes (Disabling, Other)
  Sender: FDA-Public Use
  Company Number: US-PFIZER INC-2007013826

PATIENT
  Sex: Female
  Weight: 74.8 kg

DRUGS (5)
  1. ZOLOFT [Suspect]
     Indication: DEPRESSION
  2. CHANTIX [Suspect]
     Indication: SMOKING CESSATION THERAPY
  3. CLONIDINE [Concomitant]
  4. LORTAB [Concomitant]
  5. PREMARIN [Concomitant]

REACTIONS (10)
  - BACK DISORDER [None]
  - BACK PAIN [None]
  - BODY HEIGHT DECREASED [None]
  - DISABILITY [None]
  - FEELING ABNORMAL [None]
  - ROTATOR CUFF REPAIR [None]
  - SCAR [None]
  - SENSORY DISTURBANCE [None]
  - STRESS [None]
  - WEIGHT INCREASED [None]
